FAERS Safety Report 8565163-5 (Version None)
Quarter: 2012Q3

REPORT INFORMATION
  Report Type: 
  Country: None (occurrence: None)
  Receive Date: 20120803
  Receipt Date: 20120802
  Transmission Date: 20120928
  Serious: Yes (Hospitalization)
  Sender: FDA-Public Use
  Company Number: AU-ROCHE-1093452

PATIENT
  Age: 72 Year
  Sex: Male
  Weight: 83.4 kg

DRUGS (13)
  1. PRAMIPEXOLE DIHYDROCHLORIDE [Concomitant]
     Dates: start: 20110101
  2. PANTOPRAZOLE SODIUM [Concomitant]
     Dates: start: 20000101
  3. ZOCOR [Concomitant]
     Dates: start: 20010101
  4. NITROLINGUAL [Concomitant]
     Dates: start: 20010101
  5. VEMURAFENIB [Suspect]
     Indication: METASTATIC MALIGNANT MELANOMA
     Dosage: LAST DOSE PRIOR TO SAE 16/JAN/2012
     Route: 048
     Dates: start: 20111230, end: 20120118
  6. ARTANE [Concomitant]
     Dates: start: 20110101, end: 20120120
  7. MINIPRESS [Concomitant]
     Dates: start: 20000101
  8. PERINDOPRIL ERBUMINE [Concomitant]
     Dates: start: 20010101
  9. ZOFRAN [Concomitant]
     Dates: start: 20111001
  10. CLOPIDOGREL BISULFATE [Concomitant]
     Dates: start: 20010101
  11. PANADEINE (AUSTRALIA) [Concomitant]
     Dosage: 30/500 MG
     Dates: start: 20110101
  12. DEXAMETHASONE [Concomitant]
     Dates: start: 20120123, end: 20120125
  13. DEXAMETHASONE [Concomitant]
     Dates: start: 20111001, end: 20120123

REACTIONS (1)
  - COGNITIVE DISORDER [None]
